FAERS Safety Report 4965242-5 (Version None)
Quarter: 2006Q1

REPORT INFORMATION
  Report Type: 
  Country: None (occurrence: None)
  Receive Date: 20060130
  Receipt Date: 20050603
  Transmission Date: 20060701
  Serious: No
  Sender: FDA-Public Use
  Company Number: COT_0273_2005

PATIENT
  Age: 53 Year
  Sex: Female
  Weight: 111.5849 kg

DRUGS (8)
  1. VENTAVIS [Suspect]
     Indication: PULMONARY HYPERTENSION
     Dosage: 2.5 MCG ONCE IH
     Route: 055
     Dates: start: 20050415, end: 20050415
  2. VENTAVIS [Suspect]
     Indication: PULMONARY HYPERTENSION
     Dosage: 5 MCG 6TO9X/DAY IH
     Route: 055
     Dates: start: 20050415
  3. VENTAVIS [Suspect]
     Indication: PULMONARY HYPERTENSION
     Dosage: 5 MCG 5XD IH
     Route: 055
  4. ALDACTONE [Concomitant]
  5. DIGOXIN [Concomitant]
  6. FUROSEMIDE [Concomitant]
  7. SYNTHROID [Concomitant]
  8. LACTULOSE [Concomitant]

REACTIONS (5)
  - ASTHENIA [None]
  - COUGH [None]
  - DIZZINESS [None]
  - NAUSEA [None]
  - VOMITING [None]
